FAERS Safety Report 7065333-1 (Version None)
Quarter: 2010Q4

REPORT INFORMATION
  Report Type: 
  Country: None (occurrence: None)
  Receive Date: 20101022
  Receipt Date: 20101022
  Transmission Date: 20110411
  Serious: No
  Sender: FDA-Public Use
  Company Number: None

PATIENT
  Age: 59 Year
  Sex: Female
  Weight: 73.9363 kg

DRUGS (1)
  1. ADALIMUMAB 40 MG HUMIRA [Suspect]
     Indication: CROHN'S DISEASE
     Dosage: 40 MG BI-WEEKLY SQ
     Route: 058
     Dates: start: 20101005, end: 20101005

REACTIONS (2)
  - BLOOD PRESSURE SYSTOLIC INCREASED [None]
  - HEADACHE [None]
